FAERS Safety Report 25779523 (Version 1)
Quarter: 2025Q3

REPORT INFORMATION
  Report Type: Spontaneous
  Country: CN (occurrence: CN)
  Receive Date: 20250909
  Receipt Date: 20250909
  Transmission Date: 20251020
  Serious: Yes (Hospitalization)
  Sender: CHEPLAPHARM
  Company Number: None

PATIENT
  Age: 43 Year
  Sex: Male
  Weight: 75 kg

DRUGS (7)
  1. CAPECITABINE [Suspect]
     Active Substance: CAPECITABINE
     Indication: Rectal adenocarcinoma
     Dosage: (2.0 G IN THE MORNING, 1.5 G IN THE EVENING, PO, D1-D14) Q21D?DAILY DOSE: 3.5 GRAM
     Route: 048
     Dates: start: 20240810, end: 20240821
  2. CAPECITABINE [Suspect]
     Active Substance: CAPECITABINE
     Indication: Rectal adenocarcinoma
     Route: 048
     Dates: start: 202409
  3. CAPECITABINE [Suspect]
     Active Substance: CAPECITABINE
     Indication: Rectal adenocarcinoma
     Route: 048
     Dates: start: 202409
  4. CAPECITABINE [Suspect]
     Active Substance: CAPECITABINE
     Indication: Rectal adenocarcinoma
     Route: 048
     Dates: start: 202410
  5. OXALIPLATIN [Suspect]
     Active Substance: OXALIPLATIN
     Indication: Rectal adenocarcinoma
     Dosage: INTRAVENOUS DRIP, DAY 1
     Route: 042
     Dates: start: 20240810, end: 202409
  6. PALONOSETRON [Suspect]
     Active Substance: PALONOSETRON
     Indication: Gastrointestinal disorder prophylaxis
     Dates: start: 20240810
  7. DEXAMETHASONE [Suspect]
     Active Substance: DEXAMETHASONE
     Indication: Gastrointestinal disorder prophylaxis
     Dates: start: 20240810

REACTIONS (7)
  - Cardiac failure [Recovered/Resolved]
  - Renal injury [Recovered/Resolved]
  - Hepatocellular injury [Recovered/Resolved]
  - Diarrhoea [Unknown]
  - Hypoaesthesia [Unknown]
  - Tremor [Unknown]
  - Nausea [Unknown]

NARRATIVE: CASE EVENT DATE: 20240810
